FAERS Safety Report 5342314-7 (Version None)
Quarter: 2007Q2

REPORT INFORMATION
  Report Type: 
  Country: None (occurrence: None)
  Receive Date: 20070601
  Receipt Date: 20070524
  Transmission Date: 20071010
  Serious: Yes (Other)
  Sender: FDA-Public Use
  Company Number: US-SANOFI-SYNTHELABO-A03200703340

PATIENT
  Sex: Male

DRUGS (4)
  1. NORVASC [Concomitant]
     Dosage: UNK
     Route: 048
  2. LIPITOR [Concomitant]
     Route: 048
  3. PLETAL [Concomitant]
     Dosage: UNK
     Route: 048
     Dates: start: 20040101
  4. PLAVIX [Suspect]
     Indication: PERIPHERAL ARTERIAL OCCLUSIVE DISEASE
     Route: 048
     Dates: start: 20040101

REACTIONS (2)
  - DIABETES MELLITUS [None]
  - DRUG INEFFECTIVE [None]
